FAERS Safety Report 6284536-7 (Version None)
Quarter: 2009Q3

REPORT INFORMATION
  Report Type: 
  Country: None (occurrence: None)
  Receive Date: 20090727
  Receipt Date: 20090615
  Transmission Date: 20100115
  Serious: No
  Sender: FDA-Public Use
  Company Number: US-ALEXION-A200900484

PATIENT
  Sex: Female

DRUGS (9)
  1. SOLIRIS [Suspect]
     Indication: PAROXYSMAL NOCTURNAL HAEMOGLOBINURIA
     Dosage: 600 MG, QW
     Route: 042
     Dates: start: 20090422, end: 20090501
  2. SOLIRIS [Suspect]
     Dosage: 900 MG, Q2W
     Route: 042
     Dates: start: 20090520
  3. COLACE [Concomitant]
     Dosage: 100 MG, BID
     Route: 048
  4. SENOKOT                            /00142201/ [Concomitant]
     Dosage: 8.6 MG, QD
     Route: 048
  5. FOLIC ACID [Concomitant]
     Dosage: 1 MG, BID
     Route: 048
  6. IRON [Concomitant]
     Dosage: 325 MG, QD
     Route: 048
  7. ARIXTRA [Concomitant]
     Dosage: 7.5 MG, QD
     Route: 058
  8. LASIX [Concomitant]
     Dosage: 40 MG, QD
     Route: 048
  9. GLYCOLAX [Concomitant]
     Dosage: 1 CUP, PRN
     Route: 048

REACTIONS (1)
  - HEADACHE [None]
